FAERS Safety Report 7780781-X (Version None)
Quarter: 2011Q3

REPORT INFORMATION
  Report Type: 
  Country: None (occurrence: None)
  Receive Date: 20110927
  Receipt Date: 20110921
  Transmission Date: 20111222
  Serious: No
  Sender: FDA-Public Use
  Company Number: US-PFIZER INC-2011225736

PATIENT
  Sex: Female

DRUGS (2)
  1. PRADAXA [Suspect]
     Dosage: UNK
     Dates: start: 20110121
  2. TIKOSYN [Suspect]
     Dosage: UNK
     Dates: start: 20110121

REACTIONS (1)
  - CHEST PAIN [None]
